FAERS Safety Report 6375944-4 (Version None)
Quarter: 2009Q3

REPORT INFORMATION
  Report Type: 
  Country: None (occurrence: None)
  Receive Date: 20090918
  Receipt Date: 20090903
  Transmission Date: 20100115
  Serious: Yes (Other)
  Sender: FDA-Public Use
  Company Number: 8051825

PATIENT
  Age: 35 Year
  Sex: Male

DRUGS (2)
  1. PREDNISOLONE [Suspect]
  2. PREDNISOLONE [Suspect]

REACTIONS (2)
  - ACUTE GRAFT VERSUS HOST DISEASE IN INTESTINE [None]
  - GASTROENTERITIS NOROVIRUS [None]
